FAERS Safety Report 10203316 (Version 1)
Quarter: 2014Q2

REPORT INFORMATION
  Report Type: Report from Study
  Country: AU (occurrence: AU)
  Receive Date: 20140529
  Receipt Date: 20140529
  Transmission Date: 20141212
  Serious: Yes (Hospitalization, Other)
  Sender: FDA-Public Use
  Company Number: PHHY2014AU060924

PATIENT
  Age: 34 Year
  Sex: Male

DRUGS (4)
  1. CLOZARIL [Suspect]
     Indication: SCHIZOPHRENIA
     Dosage: 100 MG, TWO AND HALF TABLETS
     Dates: start: 2005
  2. DIZOLE ONE [Concomitant]
     Dosage: 200 MG, 4 IN MORNING
  3. EPILIM [Concomitant]
     Dosage: 200 MG, BID
  4. MEGAFOL [Concomitant]
     Dosage: 0.5 MG, 1 TABLETS DAILY

REACTIONS (15)
  - Cryptococcosis [Unknown]
  - Brain abscess [Unknown]
  - Lung abscess [Unknown]
  - Neuroleptic malignant syndrome [Unknown]
  - Convulsion [Unknown]
  - Central nervous system lesion [Recovering/Resolving]
  - Lower respiratory tract infection [Unknown]
  - Blood glucose increased [Unknown]
  - Folate deficiency [Unknown]
  - Respiratory disorder [Unknown]
  - Weight decreased [Unknown]
  - Glucose tolerance impaired [Unknown]
  - Antipsychotic drug level below therapeutic [Unknown]
  - Tachycardia [Unknown]
  - Tremor [Unknown]
